FAERS Safety Report 6909994-3 (Version None)
Quarter: 2010Q3

REPORT INFORMATION
  Report Type: 
  Country: None (occurrence: None)
  Receive Date: 20100806
  Receipt Date: 20100727
  Transmission Date: 20110219
  Serious: No
  Sender: FDA-Public Use
  Company Number: US-BIOGENIDEC-2010BI025550

PATIENT
  Age: 62 Year
  Sex: Female

DRUGS (2)
  1. AVONEX [Suspect]
     Indication: MULTIPLE SCLEROSIS
     Route: 030
  2. CLONAZEPAM [Concomitant]
     Indication: SLEEP DISORDER
     Dates: end: 20100101

REACTIONS (4)
  - ASTHENIA [None]
  - CONFUSIONAL AROUSAL [None]
  - DELUSION [None]
  - MEMORY IMPAIRMENT [None]
